FAERS Safety Report 16443663 (Version 1)
Quarter: 2019Q2

REPORT INFORMATION
  Report Type: Spontaneous
  Country: CH (occurrence: CH)
  Receive Date: 20190618
  Receipt Date: 20190618
  Transmission Date: 20190711
  Serious: Yes (Other)
  Sender: FDA-Public Use
  Company Number: CH-TEVA-2019-CH-1064132

PATIENT
  Age: 26 Month
  Sex: Female

DRUGS (4)
  1. SALBUTAMOL INFUSION [Suspect]
     Active Substance: ALBUTEROL
     Indication: BRONCHITIS
     Dosage: 2 MICROG/KG/MIN
     Route: 041
  2. METHYLPREDNISOLONE. [Concomitant]
     Active Substance: METHYLPREDNISOLONE
     Indication: BRONCHITIS
     Dosage: 2 MG/KG DAILY; RESCUE TREATMENT
     Route: 065
  3. IPRATROPIUM BROMIDE. [Concomitant]
     Active Substance: IPRATROPIUM BROMIDE
     Indication: BRONCHITIS
     Dosage: RESCUE TREATMENT
  4. SALBUTAMOL INHALATION [Suspect]
     Active Substance: ALBUTEROL
     Indication: BRONCHITIS
     Route: 055

REACTIONS (2)
  - Infantile haemangioma [Recovered/Resolved with Sequelae]
  - Disease recurrence [Recovered/Resolved with Sequelae]
